FAERS Safety Report 11700392 (Version 1)
Quarter: 2015Q4

REPORT INFORMATION
  Report Type: Spontaneous
  Country: US (occurrence: US)
  Receive Date: 20151105
  Receipt Date: 20151105
  Transmission Date: 20160304
  Serious: No
  Sender: FDA-Public Use
  Company Number: US-PFIZER INC-2015371494

PATIENT
  Age: 35 Year
  Sex: Female

DRUGS (3)
  1. ALBUTEROL /00139501/ [Concomitant]
     Active Substance: ALBUTEROL
     Indication: ASTHMA
  2. LEVOTHYROXINE SODIUM. [Suspect]
     Active Substance: LEVOTHYROXINE SODIUM
     Indication: THYROID DISORDER
     Dosage: UNK
     Dates: start: 2012, end: 2014
  3. LORATADINE. [Concomitant]
     Active Substance: LORATADINE
     Indication: HYPERSENSITIVITY
     Dosage: 10 MG, 1X/DAY CAPLET BY MOUTH
     Route: 048

REACTIONS (5)
  - Feeling jittery [Unknown]
  - Condition aggravated [Unknown]
  - Palpitations [Unknown]
  - Weight increased [Unknown]
  - Chest pain [Unknown]

NARRATIVE: CASE EVENT DATE: 2012
